FAERS Safety Report 5459790-1 (Version None)
Quarter: 2007Q3

REPORT INFORMATION
  Report Type: 
  Country: None (occurrence: None)
  Receive Date: 20070919
  Receipt Date: 20070910
  Transmission Date: 20080115
  Serious: Yes (Other)
  Sender: FDA-Public Use
  Company Number: CZ-ROCHE-472603

PATIENT
  Age: 73 Year
  Sex: Male
  Weight: 79 kg

DRUGS (5)
  1. INTERFERON ALFA-2A [Suspect]
     Indication: METASTATIC RENAL CELL CARCINOMA
     Route: 058
     Dates: start: 20050524
  2. INTERFERON ALFA-2A [Suspect]
     Route: 058
     Dates: start: 20050725
  3. BLINDED BEVACIZUMAB [Suspect]
     Indication: METASTATIC RENAL CELL CARCINOMA
     Route: 042
     Dates: start: 20050524, end: 20050623
  4. BLINDED BEVACIZUMAB [Suspect]
     Route: 042
     Dates: start: 20050719
  5. PARALEN [Concomitant]
     Indication: PROPHYLAXIS
     Dates: start: 20050524

REACTIONS (1)
  - PULMONARY EMBOLISM [None]
